FAERS Safety Report 7737965-6 (Version None)
Quarter: 2011Q3

REPORT INFORMATION
  Report Type: 
  Country: None (occurrence: None)
  Receive Date: 20110908
  Receipt Date: 20110908
  Transmission Date: 20111222
  Serious: Yes (Hospitalization, Other)
  Sender: FDA-Public Use
  Company Number: CR-PFIZER INC-2011208466

PATIENT
  Age: 88 Year
  Sex: Female

DRUGS (7)
  1. ISOSORBIDE [Concomitant]
  2. COREG [Concomitant]
  3. COZAAR [Concomitant]
  4. LIPITOR [Concomitant]
  5. FUROSEMIDE [Concomitant]
  6. FOLIC ACID [Concomitant]
  7. PANTOPRAZOLE [Suspect]
     Indication: PROPHYLAXIS
     Dosage: 40 MG DAILY
     Route: 048
     Dates: start: 20100101

REACTIONS (2)
  - DIVERTICULUM [None]
  - GASTRIC ULCER [None]
